FAERS Safety Report 6375771-8 (Version None)
Quarter: 2009Q3

REPORT INFORMATION
  Report Type: 
  Country: None (occurrence: None)
  Receive Date: 20090922
  Receipt Date: 20090922
  Transmission Date: 20100115
  Serious: Yes (Other)
  Sender: FDA-Public Use
  Company Number: None

PATIENT
  Age: 45 Year
  Sex: Female
  Weight: 56.246 kg

DRUGS (2)
  1. TYSABRI [Suspect]
     Indication: MULTIPLE SCLEROSIS
     Dosage: UNKNOWN 1 X PER MONTH IV DRIP
     Route: 041
     Dates: start: 20020706, end: 20020706
  2. TYSABRI [Suspect]
     Indication: MULTIPLE SCLEROSIS
     Dosage: UNKNOWN 1 X PER MONTH IV DRIP
     Route: 041
     Dates: start: 20020808, end: 20020808

REACTIONS (8)
  - ANXIETY [None]
  - DIZZINESS [None]
  - JC VIRUS INFECTION [None]
  - NAUSEA [None]
  - PALPITATIONS [None]
  - PROGRESSIVE MULTIFOCAL LEUKOENCEPHALOPATHY [None]
  - PRURITUS [None]
  - RASH [None]
